FAERS Safety Report 5558062-4 (Version None)
Quarter: 2007Q4

REPORT INFORMATION
  Report Type: 
  Country: None (occurrence: None)
  Receive Date: 20071214
  Receipt Date: 20071207
  Transmission Date: 20080405
  Serious: Yes (Other)
  Sender: FDA-Public Use
  Company Number: US-RANBAXY-2007US-06872

PATIENT

DRUGS (1)
  1. ISOTRETINOIN [Suspect]
     Dosage: 40 MG, QD
     Route: 048
     Dates: start: 20070122, end: 20070221

REACTIONS (2)
  - ABORTION INDUCED [None]
  - PREGNANCY [None]
